FAERS Safety Report 4944497-7 (Version None)
Quarter: 2006Q1

REPORT INFORMATION
  Report Type: 
  Country: None (occurrence: None)
  Receive Date: 20060104
  Receipt Date: 20050824
  Transmission Date: 20060701
  Serious: Yes (Hospitalization)
  Sender: FDA-Public Use
  Company Number: A03200502745

PATIENT
  Age: 62 Year
  Sex: Male
  Weight: 108.6365 kg

DRUGS (3)
  1. ELOXATIN [Suspect]
     Indication: COLON CANCER
     Dosage: 170 MG Q2W - INTRAVENOUS NOS
     Route: 042
     Dates: start: 20050822, end: 20050822
  2. FLUOROURACIL [Concomitant]
  3. LEUCOVORIN [Concomitant]

REACTIONS (1)
  - PYREXIA [None]
